FAERS Safety Report 4281586-7 (Version None)
Quarter: 2004Q1

REPORT INFORMATION
  Report Type: 
  Country: None (occurrence: None)
  Receive Date: 20040129
  Receipt Date: 20040121
  Transmission Date: 20041129
  Serious: Yes (Hospitalization, Other)
  Sender: FDA-Public Use
  Company Number: PHNU2004DE00617

PATIENT
  Sex: Male

DRUGS (5)
  1. CLOZARIL [Suspect]
     Indication: SCHIZOPHRENIA
     Dosage: UNKNOWN
     Route: 048
  2. CLOZARIL [Suspect]
     Dosage: UNKNOWN
     Route: 048
     Dates: end: 20000101
  3. CLOZARIL [Suspect]
     Dosage: 300MG/DAY
     Route: 048
  4. CLOZARIL [Suspect]
     Dosage: UNKNOWN
     Route: 048
     Dates: start: 20000101
  5. DOXYCYCLINE [Suspect]
     Indication: UPPER RESPIRATORY TRACT INFECTION
     Dosage: UNKNOWN
     Route: 065
     Dates: start: 20000101, end: 20000101

REACTIONS (4)
  - DRUG INTERACTION [None]
  - DRUG LEVEL INCREASED [None]
  - STUPOR [None]
  - UPPER RESPIRATORY TRACT INFECTION [None]
